FAERS Safety Report 20968711 (Version 5)
Quarter: 2022Q4

REPORT INFORMATION
  Report Type: Spontaneous
  Country: US (occurrence: US)
  Receive Date: 20220616
  Receipt Date: 20221202
  Transmission Date: 20230112
  Serious: Yes (Hospitalization)
  Sender: FDA-Public Use
  Company Number: US-PFIZER INC-PV202200002246

PATIENT
  Age: 72 Year
  Sex: Male

DRUGS (2)
  1. INLYTA [Suspect]
     Active Substance: AXITINIB
     Dosage: 5 MG
     Dates: start: 20220613, end: 202206
  2. INLYTA [Suspect]
     Active Substance: AXITINIB
     Dosage: UNK
     Dates: start: 20220718, end: 2022

REACTIONS (9)
  - Back pain [Unknown]
  - Fall [Unknown]
  - Movement disorder [Unknown]
  - Fatigue [Unknown]
  - Decreased appetite [Unknown]
  - Aphonia [Unknown]
  - Asthenia [Unknown]
  - Dysphonia [Unknown]
  - Product dose omission issue [Unknown]

NARRATIVE: CASE EVENT DATE: 20220601
